FAERS Safety Report 24273797 (Version 1)
Quarter: 2024Q3

REPORT INFORMATION
  Report Type: Spontaneous
  Country: US (occurrence: US)
  Receive Date: 20240902
  Receipt Date: 20240902
  Transmission Date: 20241016
  Serious: No
  Sender: ASTELLAS
  Company Number: US-ASTELLAS-2024US000821

PATIENT
  Age: 65 Year
  Sex: Male

DRUGS (2)
  1. XTANDI [Suspect]
     Active Substance: ENZALUTAMIDE
     Indication: Product used for unknown indication
     Dosage: 120 MG, ONCE DAILY
     Route: 048
     Dates: start: 20230830
  2. TALZENNA [Concomitant]
     Active Substance: TALAZOPARIB TOSYLATE
     Indication: Product used for unknown indication
     Dosage: 0.35 MG, ONCE DAILY
     Route: 048

REACTIONS (2)
  - Prescribed underdose [Unknown]
  - Off label use [Unknown]

NARRATIVE: CASE EVENT DATE: 20230830
